FAERS Safety Report 7683310-4 (Version None)
Quarter: 2011Q3

REPORT INFORMATION
  Report Type: 
  Country: None (occurrence: None)
  Receive Date: 20110815
  Receipt Date: 20110804
  Transmission Date: 20111222
  Serious: Yes (Other)
  Sender: FDA-Public Use
  Company Number: FR-GLAXOSMITHKLINE-B0737087A

PATIENT
  Sex: Male

DRUGS (11)
  1. OXAZEPAM [Concomitant]
     Dosage: 10MG PER DAY
     Route: 048
  2. TERCIAN [Concomitant]
     Dosage: 25MG PER DAY
     Route: 048
  3. ZOVIRAX [Suspect]
     Indication: HERPES OPHTHALMIC
     Dosage: 800MG FIVE TIMES PER DAY
     Route: 048
     Dates: start: 20110617, end: 20110620
  4. LYRICA [Suspect]
     Indication: HERPES ZOSTER
     Dosage: 50MG TWICE PER DAY
     Route: 048
     Dates: start: 20110620, end: 20110621
  5. LAMICTAL [Concomitant]
     Indication: EPILEPSY
     Dosage: 200MG TWICE PER DAY
     Route: 048
  6. BISOPROLOL FUMARATE [Concomitant]
     Dosage: 1.25MG PER DAY
     Route: 048
  7. ZOLPIDEM [Concomitant]
     Dosage: 10MG PER DAY
     Route: 048
  8. KEPPRA [Concomitant]
     Indication: EPILEPSY
     Dosage: 1000MG TWICE PER DAY
     Route: 048
  9. ALDACTONE [Concomitant]
     Dosage: .5TAB PER DAY
     Route: 048
  10. ZOVIRAX [Suspect]
     Indication: HERPES ZOSTER
     Dosage: 350MG THREE TIMES PER DAY
     Route: 042
     Dates: start: 20110620, end: 20110621
  11. LEVOTHYROXINE SODIUM [Concomitant]
     Dosage: 75MCG PER DAY
     Route: 048

REACTIONS (1)
  - RENAL FAILURE ACUTE [None]
